FAERS Safety Report 26144507 (Version 1)
Quarter: 2025Q4

REPORT INFORMATION
  Report Type: Spontaneous
  Country: EU (occurrence: EU)
  Receive Date: 20251211
  Receipt Date: 20251211
  Transmission Date: 20260119
  Serious: Yes (Other)
  Sender: BOEHRINGER INGELHEIM
  Company Number: EU-BoehringerIngelheim-2025-BI-111848

PATIENT
  Age: 84 Year
  Sex: Male
  Weight: 68 kg

DRUGS (14)
  1. JARDIANCE [Suspect]
     Active Substance: EMPAGLIFLOZIN
     Indication: Product used for unknown indication
  2. OXYGEN [Concomitant]
     Active Substance: OXYGEN
     Dosage: LTOT STATIONARY AND MOBILE CONCENTRATOR
  3. PREDNISOLONE [Concomitant]
     Active Substance: PREDNISOLONE
  4. Calcium/Vitamine D [Concomitant]
     Dosage: 500 MG/800 IU
  5. BISOPROLOL [Concomitant]
     Active Substance: BISOPROLOL
  6. ATORVASTATIN\EZETIMIBE [Concomitant]
     Active Substance: ATORVASTATIN\EZETIMIBE
     Dosage: 10/40 MG
  7. FOLIC ACID [Concomitant]
     Active Substance: FOLIC ACID
     Dosage: 5 MG 2X WEEKLY
  8. Vitamin D drops [Concomitant]
     Dosage: 40 DROPS ONCE WEEKLY
  9. METFORMIN\SITAGLIPTIN [Concomitant]
     Active Substance: METFORMIN\SITAGLIPTIN
     Dosage: 50/1000 MG
  10. ASPIRIN [Concomitant]
     Active Substance: ASPIRIN
  11. TORSEMIDE [Concomitant]
     Active Substance: TORSEMIDE
  12. PANTOPRAZOLE [Concomitant]
     Active Substance: PANTOPRAZOLE
  13. INSULIN ASPART [Concomitant]
     Active Substance: INSULIN ASPART
     Dosage: 100 IU/ML AS NEEDED
  14. INSULIN GLARGINE [Concomitant]
     Active Substance: INSULIN GLARGINE
     Dosage: 300 IU/ML IN THE EVENING

REACTIONS (10)
  - Pulmonary fibrosis [Unknown]
  - Heart failure with preserved ejection fraction [Unknown]
  - Pneumonia legionella [Recovered/Resolved]
  - Pruritus [Unknown]
  - Dry mouth [Unknown]
  - Xerophthalmia [Unknown]
  - Chronic kidney disease [Unknown]
  - Bronchiectasis [Unknown]
  - Emphysema [Unknown]
  - Cardiac failure chronic [Unknown]

NARRATIVE: CASE EVENT DATE: 20250501
